FAERS Safety Report 8966276 (Version 1)
Quarter: 2012Q4

REPORT INFORMATION
  Report Type: Spontaneous
  Country: US (occurrence: None)
  Receive Date: 20121203
  Receipt Date: 20121203
  Transmission Date: 20130627
  Serious: Yes (Other)
  Sender: FDA-Public Use
  Company Number: 2012034089

PATIENT
  Sex: Male

DRUGS (1)
  1. HIZENTRA [Suspect]
     Dates: start: 20121116, end: 20121116

REACTIONS (4)
  - Rash [None]
  - Urticaria [None]
  - Oedema peripheral [None]
  - Contusion [None]
